FAERS Safety Report 5496147-1 (Version None)
Quarter: 2007Q4

REPORT INFORMATION
  Report Type: 
  Country: None (occurrence: None)
  Receive Date: 20071023
  Receipt Date: 20071023
  Transmission Date: 20080405
  Serious: Yes (Life-Threatening)
  Sender: FDA-Public Use
  Company Number: None

PATIENT
  Age: 30 Year
  Sex: Female
  Weight: 64.4108 kg

DRUGS (1)
  1. NEOSPORIN [Suspect]
     Indication: BLISTER

REACTIONS (12)
  - APPLICATION SITE IRRITATION [None]
  - BLINDNESS TRANSIENT [None]
  - BLOOD PRESSURE DECREASED [None]
  - DRUG HYPERSENSITIVITY [None]
  - DYSPNOEA [None]
  - HYPERVENTILATION [None]
  - LOSS OF CONSCIOUSNESS [None]
  - LUNG DISORDER [None]
  - MEMORY IMPAIRMENT [None]
  - SHOCK [None]
  - TUNNEL VISION [None]
  - URTICARIA [None]
